FAERS Safety Report 11757610 (Version 1)
Quarter: 2015Q4

REPORT INFORMATION
  Report Type: Report from Study
  Country: DE (occurrence: DE)
  Receive Date: 20151120
  Receipt Date: 20151120
  Transmission Date: 20160304
  Serious: Yes (Other)
  Sender: FDA-Public Use
  Company Number: PHHY2015DE022208

PATIENT
  Sex: Female

DRUGS (11)
  1. IBUPROFEN. [Concomitant]
     Active Substance: IBUPROFEN
     Dosage: 800 MG, QD
     Route: 048
     Dates: start: 20141130, end: 20141202
  2. GILENYA [Suspect]
     Active Substance: FINGOLIMOD HYDROCHLORIDE
     Indication: MULTIPLE SCLEROSIS
     Dosage: 0.5 MG, QD
     Route: 048
     Dates: start: 20131023
  3. GRIPPOSTAD C [Concomitant]
     Indication: NASOPHARYNGITIS
     Dosage: 378 MG, TID
     Route: 048
     Dates: start: 20141121, end: 20141130
  4. IBUPROFEN. [Concomitant]
     Active Substance: IBUPROFEN
     Dosage: 400 MG, PRN
     Route: 048
     Dates: start: 20150113, end: 20150129
  5. DULCOLAX NOS [Concomitant]
     Active Substance: BISACODYL OR DOCUSATE SODIUM
     Indication: GASTROINTESTINAL MOTILITY DISORDER
     Dosage: 5 MG, QD
     Route: 048
     Dates: start: 20140122, end: 20140128
  6. IBUPROFEN. [Concomitant]
     Active Substance: IBUPROFEN
     Indication: NECK PAIN
     Dosage: 200 MG, BID
     Route: 048
     Dates: start: 20131226, end: 20131226
  7. PANTOPRAZOLE [Concomitant]
     Active Substance: PANTOPRAZOLE SODIUM
     Indication: ABDOMINAL PAIN UPPER
     Dosage: 20 MG, QW
     Route: 048
     Dates: start: 20140307, end: 20140428
  8. PANTOPRAZOLE [Concomitant]
     Active Substance: PANTOPRAZOLE SODIUM
     Dosage: 40 MG, PRN
     Route: 048
     Dates: start: 20140428, end: 20140726
  9. VOMEX A [Concomitant]
     Active Substance: DIMENHYDRINATE
     Indication: NAUSEA
     Dosage: 50 MG, PRN
     Route: 030
     Dates: start: 20130612
  10. IBUPROFEN. [Concomitant]
     Active Substance: IBUPROFEN
     Indication: CLUSTER HEADACHE
     Dosage: 800 MG, QD
     Route: 048
     Dates: start: 20140930, end: 20141002
  11. ZOPICLON [Concomitant]
     Active Substance: ZOPICLONE
     Indication: PRODUCT USED FOR UNKNOWN INDICATION
     Dosage: 3.75 MG, QD
     Route: 065
     Dates: start: 20150812, end: 20150812

REACTIONS (3)
  - Otitis media [Recovered/Resolved]
  - Ear pain [Recovered/Resolved]
  - Haemorrhagic diathesis [Not Recovered/Not Resolved]

NARRATIVE: CASE EVENT DATE: 20150209
